FAERS Safety Report 18710591 (Version 2)
Quarter: 2021Q3

REPORT INFORMATION
  Report Type: Spontaneous
  Country: US (occurrence: US)
  Receive Date: 20210107
  Receipt Date: 20210824
  Transmission Date: 20211014
  Serious: Yes (Other)
  Sender: FDA-Public Use
  Company Number: US-ASTRAZENECA-2020SF76118

PATIENT
  Sex: Male

DRUGS (22)
  1. METFORMIN [Concomitant]
     Active Substance: METFORMIN HYDROCHLORIDE
  2. NEXIUM [Suspect]
     Active Substance: ESOMEPRAZOLE MAGNESIUM
     Indication: DYSPEPSIA
     Route: 048
     Dates: start: 200201, end: 201612
  3. NEXIUM [Suspect]
     Active Substance: ESOMEPRAZOLE MAGNESIUM
     Indication: DYSPEPSIA
     Dosage: 20/40 MG
     Route: 048
     Dates: start: 2002, end: 2016
  4. NOVOLOG [Concomitant]
     Active Substance: INSULIN ASPART
  5. CHANTIX [Concomitant]
     Active Substance: VARENICLINE TARTRATE
  6. PNEUMOVAX 23 [Concomitant]
     Active Substance: PNEUMOCOCCAL VACCINE, POLYVALENT 23
  7. GLIMEPIRIDE. [Concomitant]
     Active Substance: GLIMEPIRIDE
  8. FLUVIRIN NOS [Concomitant]
     Active Substance: INFLUENZA VIRUS VACCINE
  9. FUROSEMIDE. [Concomitant]
     Active Substance: FUROSEMIDE
     Dates: start: 2014, end: 2017
  10. SPIRONOLACTONE. [Concomitant]
     Active Substance: SPIRONOLACTONE
     Dates: start: 2014, end: 2017
  11. JANUVIA [Concomitant]
     Active Substance: SITAGLIPTIN PHOSPHATE
  12. PRILOSEC [Suspect]
     Active Substance: OMEPRAZOLE MAGNESIUM
     Indication: DYSPEPSIA
     Dosage: 20/40 MG
     Route: 048
     Dates: start: 2002, end: 2016
  13. LEVEMIR [Concomitant]
     Active Substance: INSULIN DETEMIR
  14. ASPIRIN. [Concomitant]
     Active Substance: ASPIRIN
  15. LISINOPRIL. [Concomitant]
     Active Substance: LISINOPRIL
     Dates: start: 2014, end: 2017
  16. ILEVRO [Concomitant]
     Active Substance: NEPAFENAC
  17. PRILOSEC [Suspect]
     Active Substance: OMEPRAZOLE MAGNESIUM
     Indication: DYSPEPSIA
     Route: 048
     Dates: start: 200201, end: 201612
  18. TRAVATAN [Concomitant]
     Active Substance: TRAVOPROST
  19. CARVEDILOL. [Concomitant]
     Active Substance: CARVEDILOL
  20. SYMBICORT [Concomitant]
     Active Substance: BUDESONIDE\FORMOTEROL FUMARATE DIHYDRATE
  21. ADVAIR HFA [Concomitant]
     Active Substance: FLUTICASONE PROPIONATE\SALMETEROL XINAFOATE
  22. CYCLOBENZAPRINE. [Concomitant]
     Active Substance: CYCLOBENZAPRINE

REACTIONS (1)
  - Chronic kidney disease [Not Recovered/Not Resolved]
